FAERS Safety Report 8320508-6 (Version None)
Quarter: 2012Q2

REPORT INFORMATION
  Report Type: 
  Country: None (occurrence: None)
  Receive Date: 20120427
  Receipt Date: 20120427
  Transmission Date: 20120825
  Serious: Yes (Other)
  Sender: FDA-Public Use
  Company Number: None

PATIENT
  Age: 74 Year
  Sex: Male
  Weight: 85.275 kg

DRUGS (2)
  1. LIVALO [Suspect]
     Indication: BLOOD TRIGLYCERIDES
     Dosage: 4MG
     Route: 048
     Dates: start: 20111213, end: 20120426
  2. LIVALO [Concomitant]

REACTIONS (5)
  - MUSCLE SPASMS [None]
  - NECK PAIN [None]
  - MUSCULOSKELETAL PAIN [None]
  - DIARRHOEA [None]
  - PAIN IN EXTREMITY [None]
